FAERS Safety Report 8128440-8 (Version None)
Quarter: 2012Q1

REPORT INFORMATION
  Report Type: 
  Country: None (occurrence: None)
  Receive Date: 20120210
  Receipt Date: 20120131
  Transmission Date: 20120608
  Serious: Yes (Hospitalization, Other)
  Sender: FDA-Public Use
  Company Number: GB-ROCHE-583593

PATIENT
  Sex: Female
  Weight: 69.5 kg

DRUGS (6)
  1. XELODA [Suspect]
     Dosage: FREQUENCY REPORTED AS BD
     Route: 048
  2. AVASTIN [Suspect]
     Route: 042
  3. XELODA [Suspect]
     Indication: COLON CANCER
     Dosage: CYCLE:4. INTERRUPTED.
     Route: 048
  4. AVASTIN [Suspect]
     Indication: COLON CANCER
     Dosage: FORM: INFUSION, CYCLE:4. INTERRUPTED.
     Route: 042
  5. XELODA [Suspect]
     Route: 048
  6. AVASTIN [Suspect]
     Route: 042

REACTIONS (2)
  - DEEP VEIN THROMBOSIS [None]
  - OEDEMA PERIPHERAL [None]
